FAERS Safety Report 21558180 (Version 1)
Quarter: 2022Q4

REPORT INFORMATION
  Report Type: Report from Study
  Country: US (occurrence: US)
  Receive Date: 20221107
  Receipt Date: 20221107
  Transmission Date: 20230112
  Serious: Yes (Hospitalization, Other)
  Sender: FDA-Public Use
  Company Number: US-TAKEDA-2022TUS079362

PATIENT
  Age: 49 Year
  Sex: Male

DRUGS (21)
  1. LANADELUMAB [Suspect]
     Active Substance: LANADELUMAB
     Indication: Hereditary angioedema
     Dosage: UNK
     Route: 065
  2. ASPIRIN [Concomitant]
     Active Substance: ASPIRIN
     Indication: Prophylaxis
     Dosage: 325 MILLIGRAM
     Route: 048
     Dates: start: 20151111
  3. NEBIVOLOL [Concomitant]
     Active Substance: NEBIVOLOL
     Indication: Hypertension
     Dosage: 5 MILLIGRAM
     Route: 048
     Dates: start: 20210611
  4. AMLODIPINE [Concomitant]
     Active Substance: AMLODIPINE BESYLATE
     Indication: Hypertension
     Dosage: 5 MILLIGRAM
     Route: 048
     Dates: start: 20201026, end: 20210611
  5. VITAMIN C [Concomitant]
     Active Substance: ASCORBIC ACID
     Indication: General physical health deterioration
     Dosage: 500 MILLIGRAM
     Dates: start: 20140520
  6. VITAMIN B COMPLEX [Concomitant]
     Active Substance: CYANOCOBALAMIN\DEXPANTHENOL\NIACINAMIDE\PYRIDOXINE HYDROCHLORIDE\RIBOFLAVIN 5^-PHOSPHATE SODIUM\THIA
     Indication: General physical health deterioration
     Dosage: 1 DOSAGE FORM
     Route: 048
     Dates: start: 20140520
  7. FIORICET [Concomitant]
     Active Substance: ACETAMINOPHEN\BUTALBITAL\CAFFEINE
     Indication: Migraine
     Dosage: 325 MILLIGRAM
     Route: 048
     Dates: start: 20191112
  8. CHOLECALCIFEROL [Concomitant]
     Active Substance: CHOLECALCIFEROL
     Indication: General physical health deterioration
     Dosage: 2000 DOSAGE FORM
     Route: 048
     Dates: start: 20140519
  9. FISH OIL [Concomitant]
     Active Substance: FISH OIL
     Indication: General physical health deterioration
     Dosage: 400 MILLIGRAM
     Route: 048
     Dates: start: 20140520
  10. VITAMINS [Concomitant]
     Active Substance: VITAMINS
     Indication: General physical health deterioration
     Dosage: 1 DOSAGE FORM
     Route: 048
     Dates: start: 20140520
  11. VITAMIN E [Concomitant]
     Active Substance: .ALPHA.-TOCOPHEROL
     Indication: General physical health deterioration
     Dosage: 400 DOSAGE FORM
     Route: 048
     Dates: start: 20140326
  12. XIIDRA [Concomitant]
     Active Substance: LIFITEGRAST
     Indication: Dry eye
     Dosage: 1 GTT DROPS
     Dates: start: 20211028
  13. ZINC SULFATE [Concomitant]
     Active Substance: ZINC SULFATE
     Indication: Hepatic enzyme increased
     Dosage: 220 MILLIGRAM
     Route: 048
     Dates: start: 20160504
  14. PFIZER-BIONTECH COVID-19 VACCINE [Concomitant]
     Active Substance: TOZINAMERAN
     Indication: Immunisation
     Dosage: 0.3 MILLILITER
     Route: 030
     Dates: start: 20210323, end: 20210323
  15. PFIZER-BIONTECH COVID-19 VACCINE [Concomitant]
     Active Substance: TOZINAMERAN
     Dosage: 0.3 MILLILITER
     Route: 030
     Dates: start: 20210422, end: 20210422
  16. EPINEPHRINE [Concomitant]
     Active Substance: EPINEPHRINE
     Indication: Anaphylactic reaction
     Dosage: 0.3 MILLIGRAM
     Route: 030
     Dates: start: 20160720
  17. PEDIALYTE [Concomitant]
     Active Substance: POTASSIUM CITRATE\SODIUM CITRATE\ZINC
     Indication: Dehydration
     Dosage: UNK
     Route: 048
     Dates: start: 20210530, end: 20210601
  18. CRESTOR [Concomitant]
     Active Substance: ROSUVASTATIN CALCIUM
     Indication: Hypertension
     Dosage: 5 MILLIGRAM
     Route: 048
     Dates: start: 20200825, end: 20201026
  19. FLONASE [Concomitant]
     Active Substance: FLUTICASONE PROPIONATE
     Indication: Seasonal allergy
     Dosage: 50 MICROGRAM
     Route: 045
     Dates: start: 20180417, end: 202204
  20. VALACYCLOVIR [Concomitant]
     Active Substance: VALACYCLOVIR HYDROCHLORIDE
     Indication: Herpes zoster
     Dosage: 3000 MILLIGRAM
     Route: 048
     Dates: start: 20220907, end: 20220908
  21. PREDNISONE [Concomitant]
     Active Substance: PREDNISONE
     Indication: Rash
     Dosage: 60 MILLIGRAM
     Route: 048
     Dates: start: 20220907, end: 20220912

REACTIONS (1)
  - Fracture of penis [Recovered/Resolved]

NARRATIVE: CASE EVENT DATE: 20220903
